FAERS Safety Report 9462175 (Version 1)
Quarter: 2013Q3

REPORT INFORMATION
  Report Type: Spontaneous
  Country: IE (occurrence: IE)
  Receive Date: 20130816
  Receipt Date: 20130816
  Transmission Date: 20140515
  Serious: Yes (Death, Other)
  Sender: FDA-Public Use
  Company Number: PHHY2013IE087445

PATIENT
  Age: 44 Year
  Sex: Female

DRUGS (4)
  1. PREDNISOLONE [Suspect]
     Indication: LIVER TRANSPLANT
     Dosage: 15 MG, UNK
  2. CICLOSPORIN [Suspect]
     Indication: LIVER TRANSPLANT
  3. PARACETAMOL [Suspect]
  4. TACROLIMUS [Suspect]

REACTIONS (7)
  - Pneumocystis jirovecii pneumonia [Fatal]
  - Nausea [Fatal]
  - Vomiting [Fatal]
  - Hypoxia [Fatal]
  - Convulsion [Unknown]
  - Acute hepatic failure [Unknown]
  - Overdose [Unknown]
